FAERS Safety Report 5863481-2 (Version None)
Quarter: 2008Q3

REPORT INFORMATION
  Report Type: 
  Country: None (occurrence: None)
  Receive Date: 20080828
  Receipt Date: 20080819
  Transmission Date: 20090109
  Serious: Yes (Hospitalization, Other)
  Sender: FDA-Public Use
  Company Number: BR-ELI_LILLY_AND_COMPANY-BR200808003851

PATIENT
  Sex: Female

DRUGS (4)
  1. CYMBALTA [Suspect]
     Indication: PAIN
     Dosage: UNK, UNKNOWN
     Route: 065
  2. OXYCONTIN [Concomitant]
     Dosage: UNK, UNKNOWN
     Route: 065
  3. TRYPTANOL [Concomitant]
     Dosage: UNK, UNKNOWN
     Route: 065
  4. FLUOXETINE HYDROCHLORIDE [Concomitant]
     Dosage: UNK, UNKNOWN
     Route: 065

REACTIONS (4)
  - COLITIS [None]
  - HAEMATOCHEZIA [None]
  - HEPATITIS [None]
  - PANIC REACTION [None]
